FAERS Safety Report 9137096 (Version 1)
Quarter: 2013Q1

REPORT INFORMATION
  Report Type: Spontaneous
  Country: US (occurrence: US)
  Receive Date: 20130219
  Receipt Date: 20130219
  Transmission Date: 20140127
  Serious: No
  Sender: FDA-Public Use
  Company Number: US-BRISTOL-MYERS SQUIBB COMPANY-16798738

PATIENT
  Age: 83 Year
  Sex: Male

DRUGS (1)
  1. ORENCIA [Suspect]
     Indication: RHEUMATOID ARTHRITIS
     Dosage: LAST INF: 27JUN12
     Route: 042

REACTIONS (4)
  - Musculoskeletal pain [Unknown]
  - Nasopharyngitis [Unknown]
  - Fall [Unknown]
  - Laceration [Unknown]
